FAERS Safety Report 24873791 (Version 1)
Quarter: 2025Q1

REPORT INFORMATION
  Report Type: Spontaneous
  Country: ZA (occurrence: ZA)
  Receive Date: 20250122
  Receipt Date: 20250122
  Transmission Date: 20250409
  Serious: Yes (Hospitalization)
  Sender: BAYER HEALTHCARE PHARMACEUTICALS INC.
  Company Number: ZA-BAYER-2025A009303

PATIENT
  Age: 50 Year
  Sex: Female

DRUGS (4)
  1. ANGELIQ [Suspect]
     Active Substance: DROSPIRENONE\ESTRADIOL
     Dosage: 1 DF, QD
     Route: 048
  2. AZATHIOPRINE PCH [Concomitant]
     Dosage: 50 MG, QD
     Route: 048
  3. Pantocid [Concomitant]
     Dosage: 20 MG, QD
     Route: 048
  4. Telease [Concomitant]
     Dosage: 40 MG, QD
     Route: 048

REACTIONS (1)
  - Crohn^s disease [None]
